FAERS Safety Report 5250142-6 (Version None)
Quarter: 2007Q1

REPORT INFORMATION
  Report Type: 
  Country: None (occurrence: None)
  Receive Date: 20070228
  Receipt Date: 20060303
  Transmission Date: 20070707
  Serious: No
  Sender: FDA-Public Use
  Company Number: US-GLAXOSMITHKLINE-A0593453A

PATIENT
  Age: 51 Year
  Sex: Female

DRUGS (6)
  1. LAMICTAL [Suspect]
     Indication: BIPOLAR DISORDER
     Route: 048
     Dates: start: 20060101
  2. PAMELOR [Concomitant]
  3. KLONOPIN [Concomitant]
  4. LEVOTHYROXINE SODIUM [Concomitant]
  5. VYTORIN [Concomitant]
  6. AMBIEN [Concomitant]

REACTIONS (2)
  - ANXIETY [None]
  - RASH [None]
